FAERS Safety Report 12485103 (Version 6)
Quarter: 2016Q3

REPORT INFORMATION
  Report Type: Spontaneous
  Country: KR (occurrence: KR)
  Receive Date: 20160621
  Receipt Date: 20160725
  Transmission Date: 20161109
  Serious: No
  Sender: FDA-Public Use
  Company Number: KR-009507513-1606KOR001226

PATIENT
  Age: 55 Year
  Sex: Male
  Weight: 60.6 kg

DRUGS (34)
  1. EMEND (FOSAPREPITANT DIMEGLUMINE) [Suspect]
     Active Substance: FOSAPREPITANT DIMEGLUMINE
     Dosage: 150 MG, ONCE
     Route: 042
     Dates: start: 20160704, end: 20160704
  2. MABTHERA [Concomitant]
     Active Substance: RITUXIMAB
     Indication: DIFFUSE LARGE B-CELL LYMPHOMA
     Dosage: 618 MG, ONCE, (CYCLE 2)
     Route: 042
     Dates: start: 20160613, end: 20160613
  3. MABTHERA [Concomitant]
     Active Substance: RITUXIMAB
     Dosage: 618 MG, ONCE, (CYCLE 3)
     Route: 042
     Dates: start: 20160704, end: 20160704
  4. SOLONDO [Concomitant]
     Active Substance: PREDNISOLONE
     Dosage: 40 MG, QD
     Route: 048
     Dates: start: 20160704
  5. ALOXI [Concomitant]
     Active Substance: PALONOSETRON HYDROCHLORIDE
     Dosage: 0.25 MG, ONCE
     Route: 042
     Dates: start: 20160704, end: 20160704
  6. CARDIOXANE [Concomitant]
     Active Substance: DEXRAZOXANE HYDROCHLORIDE
     Dosage: 820 MG, ONCE
     Route: 042
     Dates: start: 20160613, end: 20160613
  7. SEPTRIN [Concomitant]
     Active Substance: SULFAMETHOXAZOLE\TRIMETHOPRIM
     Dosage: 1 TABLET, BID
     Route: 048
     Dates: start: 20160704
  8. EMEND (FOSAPREPITANT DIMEGLUMINE) [Suspect]
     Active Substance: FOSAPREPITANT DIMEGLUMINE
     Dosage: 150 MG, ONCE
     Route: 042
     Dates: start: 20160613, end: 20160613
  9. ENDOXAN [Concomitant]
     Active Substance: CYCLOPHOSPHAMIDE
     Indication: CHEMOTHERAPY
     Dosage: 1245 MG, ONCE (CYCLE 1)
     Route: 042
     Dates: start: 20160523, end: 20160523
  10. VINCRISTINE SULFATE. [Concomitant]
     Active Substance: VINCRISTINE SULFATE
     Indication: DIFFUSE LARGE B-CELL LYMPHOMA
     Dosage: 2 MG, ONCE (CYCLE 2)
     Route: 042
     Dates: start: 20160613, end: 20160613
  11. SOLONDO [Concomitant]
     Active Substance: PREDNISOLONE
     Indication: PROPHYLAXIS OF NAUSEA AND VOMITING
     Dosage: 40 MG, QD
     Route: 048
     Dates: start: 20160523, end: 20160527
  12. IRCODON [Concomitant]
     Indication: ABDOMINAL PAIN UPPER
     Dosage: 10 MG, QD
     Route: 048
     Dates: start: 20160512, end: 20160612
  13. LEVOFEXIN [Concomitant]
     Active Substance: LEVOFLOXACIN
     Dosage: 500 MG, ONCE
     Route: 048
     Dates: start: 20160704
  14. EMEND (FOSAPREPITANT DIMEGLUMINE) [Suspect]
     Active Substance: FOSAPREPITANT DIMEGLUMINE
     Indication: PROPHYLAXIS OF NAUSEA AND VOMITING
     Dosage: 150 MG, ONCE
     Route: 042
     Dates: start: 20160523, end: 20160523
  15. ENDOXAN [Concomitant]
     Active Substance: CYCLOPHOSPHAMIDE
     Indication: DIFFUSE LARGE B-CELL LYMPHOMA
     Dosage: 1237 MG, ONCE, (CYCLE 2)
     Route: 042
     Dates: start: 20160613, end: 20160613
  16. VINCRISTINE SULFATE. [Concomitant]
     Active Substance: VINCRISTINE SULFATE
     Indication: CHEMOTHERAPY
     Dosage: 2 MG, ONCE (CYCLE 1) STRENGTH: 1 MG/ML
     Route: 042
     Dates: start: 20160523, end: 20160523
  17. VINCRISTINE SULFATE. [Concomitant]
     Active Substance: VINCRISTINE SULFATE
     Dosage: 2 MG, ONCE (CYCLE 3)
     Route: 042
     Dates: start: 20160704, end: 20160704
  18. SOLONDO [Concomitant]
     Active Substance: PREDNISOLONE
     Dosage: 40 MG, QD
     Route: 048
     Dates: start: 20160613, end: 20160617
  19. ALOXI [Concomitant]
     Active Substance: PALONOSETRON HYDROCHLORIDE
     Indication: PROPHYLAXIS OF NAUSEA AND VOMITING
     Dosage: 0.25 MG, ONCE
     Route: 042
     Dates: start: 20160523, end: 20160523
  20. MABTHERA [Concomitant]
     Active Substance: RITUXIMAB
     Indication: CHEMOTHERAPY
     Dosage: 626 MG, ONCE (CYCLE 1)
     Route: 042
     Dates: start: 20160523, end: 20160523
  21. TARGIN [Concomitant]
     Active Substance: NALOXONE HYDROCHLORIDE\OXYCODONE HYDROCHLORIDE
     Indication: ABDOMINAL PAIN UPPER
     Dosage: 1 TABLET, TWICE DAILY, STRENGTH: 20/10 MG
     Route: 048
     Dates: start: 20160518, end: 20160612
  22. CARDIOXANE [Concomitant]
     Active Substance: DEXRAZOXANE HYDROCHLORIDE
     Dosage: 800 MG, ONCE
     Route: 042
     Dates: start: 20160704, end: 20160704
  23. ADRIAMYCIN [Concomitant]
     Active Substance: DOXORUBICIN HYDROCHLORIDE
     Indication: CHEMOTHERAPY
     Dosage: 83 MG, ONCE (CYCLE 1)
     Route: 042
     Dates: start: 20160523, end: 20160523
  24. CARDIOXANE [Concomitant]
     Active Substance: DEXRAZOXANE HYDROCHLORIDE
     Indication: PROPHYLAXIS
     Dosage: 830 MG, ONCE
     Route: 042
     Dates: start: 20160523, end: 20160523
  25. SEPTRIN [Concomitant]
     Active Substance: SULFAMETHOXAZOLE\TRIMETHOPRIM
     Indication: INFECTION PROPHYLAXIS
     Dosage: 1 TABLET, BID
     Route: 048
     Dates: start: 20160523, end: 20160529
  26. ENDOXAN [Concomitant]
     Active Substance: CYCLOPHOSPHAMIDE
     Dosage: 1244 MG, ONCE, (CYCLE 3)
     Route: 042
     Dates: start: 20160704, end: 20160704
  27. SOLONDO [Concomitant]
     Active Substance: PREDNISOLONE
     Dosage: 30 MG, BID
     Route: 048
     Dates: start: 20160523, end: 20160527
  28. SOLONDO [Concomitant]
     Active Substance: PREDNISOLONE
     Dosage: 30 MG, BID
     Route: 048
     Dates: start: 20160704
  29. ADRIAMYCIN [Concomitant]
     Active Substance: DOXORUBICIN HYDROCHLORIDE
     Indication: DIFFUSE LARGE B-CELL LYMPHOMA
     Dosage: 82 MG, ONCE, (CYCLE 2)
     Route: 042
     Dates: start: 20160613, end: 20160613
  30. ADRIAMYCIN [Concomitant]
     Active Substance: DOXORUBICIN HYDROCHLORIDE
     Dosage: 82 MG, ONCE, (CYCLE 3)
     Route: 042
     Dates: start: 20160704, end: 20160704
  31. SOLONDO [Concomitant]
     Active Substance: PREDNISOLONE
     Dosage: 30 MG, BID
     Route: 048
     Dates: start: 20160613, end: 20160617
  32. ALOXI [Concomitant]
     Active Substance: PALONOSETRON HYDROCHLORIDE
     Dosage: 0.25 MG, ONCE
     Route: 042
     Dates: start: 20160613, end: 20160613
  33. SEPTRIN [Concomitant]
     Active Substance: SULFAMETHOXAZOLE\TRIMETHOPRIM
     Dosage: 1 TABLET, BID
     Route: 048
     Dates: start: 20160613, end: 20160619
  34. LEVOFEXIN [Concomitant]
     Active Substance: LEVOFLOXACIN
     Indication: INFECTION PROPHYLAXIS
     Dosage: 500 MG, ONCE
     Route: 048
     Dates: start: 20160523, end: 20160601

REACTIONS (5)
  - Neutrophil count decreased [Recovered/Resolved]
  - Stomatitis [Recovered/Resolved]
  - Constipation [Recovered/Resolved]
  - Neutrophil count decreased [Recovered/Resolved]
  - Headache [Recovered/Resolved]

NARRATIVE: CASE EVENT DATE: 20160529
